FAERS Safety Report 13488623 (Version 2)
Quarter: 2017Q2

REPORT INFORMATION
  Report Type: Spontaneous
  Country: LT (occurrence: LT)
  Receive Date: 20170427
  Receipt Date: 20170512
  Transmission Date: 20170830
  Serious: Yes (Death, Hospitalization)
  Sender: FDA-Public Use
  Company Number: LT-ROCHE-1925747

PATIENT
  Age: 57 Year
  Sex: Male

DRUGS (2)
  1. ZELBORAF [Suspect]
     Active Substance: VEMURAFENIB
     Indication: MALIGNANT MELANOMA
     Dosage: 240 MG N56 1920 MG (960 MG-4 TAB TWICE DAILY)
     Route: 048
     Dates: start: 20170123
  2. COTELLIC [Suspect]
     Active Substance: COBIMETINIB
     Indication: MALIGNANT MELANOMA
     Dosage: 20 MG N 63 60 MG 3TABS DAILY
     Route: 048
     Dates: start: 20170123

REACTIONS (5)
  - Venous thrombosis [Fatal]
  - Condition aggravated [Fatal]
  - Orthostatic intolerance [Fatal]
  - Arterial thrombosis [Fatal]
  - Lactic acidosis [Fatal]

NARRATIVE: CASE EVENT DATE: 20170328
